FAERS Safety Report 7557942-8 (Version None)
Quarter: 2011Q2

REPORT INFORMATION
  Report Type: 
  Country: None (occurrence: None)
  Receive Date: 20110620
  Receipt Date: 20110613
  Transmission Date: 20111010
  Serious: Yes (Hospitalization)
  Sender: FDA-Public Use
  Company Number: B0726761A

PATIENT
  Age: 70 Year
  Sex: Male

DRUGS (3)
  1. PREDNISOLONE [Suspect]
     Indication: MULTIPLE MYELOMA
     Dosage: 70MG PER DAY
     Route: 048
  2. ZOMETA [Suspect]
     Indication: MULTIPLE MYELOMA
     Dosage: 4MG PER DAY
     Route: 042
  3. ALKERAN [Suspect]
     Indication: MULTIPLE MYELOMA
     Dosage: 10MG PER DAY
     Route: 048

REACTIONS (5)
  - CYSTITIS HAEMORRHAGIC [None]
  - ANAEMIA [None]
  - THROMBOSIS [None]
  - CARDIAC TAMPONADE [None]
  - ABDOMINAL DISTENSION [None]
